FAERS Safety Report 9419970 (Version 2)
Quarter: 2013Q3

REPORT INFORMATION
  Report Type: Report from Study
  Country: US (occurrence: US)
  Receive Date: 20130725
  Receipt Date: 20130827
  Transmission Date: 20140515
  Serious: Yes (Hospitalization)
  Sender: FDA-Public Use
  Company Number: US-ABBOTT-13P-163-1121471-00

PATIENT
  Sex: Female

DRUGS (1)
  1. HUMIRA [Suspect]
     Indication: CROHN^S DISEASE
     Dosage: 160, 80, 40
     Route: 058
     Dates: start: 20130308

REACTIONS (3)
  - Intestinal stenosis [Recovered/Resolved]
  - Abdominal abscess [Recovered/Resolved]
  - Abdominal pain [Unknown]
